FAERS Safety Report 5164284-7 (Version None)
Quarter: 2006Q4

REPORT INFORMATION
  Report Type: 
  Country: None (occurrence: None)
  Receive Date: 20061129
  Receipt Date: 20061129
  Transmission Date: 20070319
  Serious: No
  Sender: FDA-Public Use
  Company Number: None

PATIENT
  Age: 70 Year
  Sex: Male
  Weight: 116.1208 kg

DRUGS (13)
  1. NEXIUM [Suspect]
     Indication: GASTROOESOPHAGEAL REFLUX DISEASE
     Dosage: ONE TABLET TWICE PER DAY PO
     Route: 048
     Dates: start: 20060914, end: 20060918
  2. PROTONIX [Suspect]
     Indication: GASTROOESOPHAGEAL REFLUX DISEASE
     Dosage: ONE TABLET TWICE PER DAY PO
     Route: 048
     Dates: start: 20060919, end: 20061026
  3. CHLORHEXIDINE GLUCONATE [Concomitant]
  4. TENORMIN [Concomitant]
  5. ZOCOR [Concomitant]
  6. TRIAMTERENE /HCTC [Concomitant]
  7. POTASSIUM CL [Concomitant]
  8. DIAZEPAM [Concomitant]
  9. MECLIZINE [Concomitant]
  10. CHLOESTYRMINE [Concomitant]
  11. PROPOXYPHENE NAPSYLATE AND ACETAMINOPHEN [Concomitant]
  12. TYLONAL [Concomitant]
  13. ASPIRIN [Concomitant]

REACTIONS (5)
  - GINGIVAL PAIN [None]
  - GLOSSODYNIA [None]
  - ORAL PAIN [None]
  - ORAL SOFT TISSUE DISORDER [None]
  - STOMATITIS [None]
